FAERS Safety Report 8849669 (Version 1)
Quarter: 2012Q4

REPORT INFORMATION
  Report Type: 
  Country: BR (occurrence: BR)
  Receive Date: 20121019
  Receipt Date: 20121019
  Transmission Date: 20130627
  Serious: Yes (Hospitalization)
  Sender: FDA-Public Use
  Company Number: BR-PFIZER INC-2012257807

PATIENT
  Age: 44 Year
  Sex: Male

DRUGS (5)
  1. CELEBRA [Suspect]
     Indication: PAIN
     Dosage: 200 mg (one capsule), 1x/day
     Route: 048
     Dates: start: 20120901
  2. CELEBRA [Suspect]
     Indication: ARTHROPATHY
  3. ATORVASTATINA [Suspect]
     Indication: BLOOD CHOLESTEROL INCREASED
     Dosage: 1 tab
  4. CONDROFLEX [Concomitant]
     Dosage: UNK
  5. ULTRACET [Concomitant]
     Dosage: UNK

REACTIONS (2)
  - Arthropathy [Unknown]
  - Drug ineffective [Unknown]
